FAERS Safety Report 15766447 (Version 3)
Quarter: 2019Q1

REPORT INFORMATION
  Report Type: Spontaneous
  Country: US (occurrence: US)
  Receive Date: 20181227
  Receipt Date: 20190318
  Transmission Date: 20190417
  Serious: No
  Sender: FDA-Public Use
  Company Number: US-PFIZER INC-2017256655

PATIENT
  Age: 61 Year
  Sex: Female
  Weight: 86 kg

DRUGS (6)
  1. XELJANZ [Suspect]
     Active Substance: TOFACITINIB CITRATE
     Indication: RHEUMATOID ARTHRITIS
     Dosage: 5 MG, 2X/DAY
     Route: 048
     Dates: start: 201802, end: 2018
  2. PRAVASTATIN. [Concomitant]
     Active Substance: PRAVASTATIN
     Indication: BLOOD CHOLESTEROL INCREASED
     Dosage: 20 MG, 1X/DAY
     Route: 048
  3. LEVOTHYROXINE. [Concomitant]
     Active Substance: LEVOTHYROXINE
     Indication: HYPOTHYROIDISM
     Dosage: 50 UG, 1X/DAY
     Route: 048
     Dates: start: 201612
  4. PREDNISONE. [Concomitant]
     Active Substance: PREDNISONE
     Dosage: UNK
  5. VERAPAMIL [Concomitant]
     Active Substance: VERAPAMIL HYDROCHLORIDE
     Indication: HYPERTENSION
     Dosage: 120 MG, 1X/DAY
     Route: 048
     Dates: start: 2015
  6. XELJANZ [Suspect]
     Active Substance: TOFACITINIB CITRATE
     Indication: OSTEOARTHRITIS
     Dosage: 5 MG, DAILY
     Dates: start: 2018

REACTIONS (8)
  - Intentional product misuse [Unknown]
  - Blood glucose increased [Unknown]
  - Rash [Unknown]
  - Hypoaesthesia [Recovering/Resolving]
  - Skin lesion [Recovering/Resolving]
  - Onycholysis [Recovering/Resolving]
  - Malaise [Unknown]
  - Skin exfoliation [Recovering/Resolving]

NARRATIVE: CASE EVENT DATE: 2018
